FAERS Safety Report 10476916 (Version 4)
Quarter: 2015Q3

REPORT INFORMATION
  Report Type: Spontaneous
  Country: CA (occurrence: CA)
  Receive Date: 20140926
  Receipt Date: 20150916
  Transmission Date: 20151125
  Serious: Yes (Hospitalization, Other)
  Sender: FDA-Public Use
  Company Number: CA-ROCHE-1466882

PATIENT
  Age: 80 Year
  Sex: Female

DRUGS (14)
  1. ADVAIR HFA [Concomitant]
     Active Substance: FLUTICASONE PROPIONATE\SALMETEROL XINAFOATE
     Route: 065
  2. PRADAXA [Concomitant]
     Active Substance: DABIGATRAN ETEXILATE MESYLATE
  3. SEEBRI [Concomitant]
     Active Substance: GLYCOPYRRONIUM
     Route: 065
  4. OXYGEN. [Concomitant]
     Active Substance: OXYGEN
  5. XOLAIR [Suspect]
     Active Substance: OMALIZUMAB
     Route: 058
     Dates: start: 20121213
  6. PANTOPRAZOLE SODIUM SESQUIHYDRATE [Concomitant]
     Active Substance: PANTOPRAZOLE SODIUM
  7. XOLAIR [Suspect]
     Active Substance: OMALIZUMAB
     Indication: ASTHMA
     Route: 058
     Dates: start: 20121130
  8. XOLAIR [Suspect]
     Active Substance: OMALIZUMAB
     Route: 058
     Dates: start: 20150117
  9. VENTOLIN [Concomitant]
     Active Substance: ALBUTEROL SULFATE
  10. DOMPERIDONE [Concomitant]
     Active Substance: DOMPERIDONE
  11. THEOPHYLLINE [Concomitant]
     Active Substance: THEOPHYLLINE ANHYDROUS
  12. XOLAIR [Suspect]
     Active Substance: OMALIZUMAB
     Route: 058
     Dates: start: 20150109
  13. ZENHALE [Concomitant]
     Active Substance: FORMOTEROL FUMARATE\MOMETASONE FUROATE
  14. DILTIAZEM [Concomitant]
     Active Substance: DILTIAZEM

REACTIONS (10)
  - Asthma [Unknown]
  - Middle insomnia [Unknown]
  - Transient ischaemic attack [Recovered/Resolved]
  - Dry mouth [Not Recovered/Not Resolved]
  - Haemorrhage [Unknown]
  - Forced expiratory volume decreased [Unknown]
  - Oesophageal neoplasm [Unknown]
  - Oropharyngeal pain [Recovering/Resolving]
  - Malaise [Unknown]
  - Nausea [Unknown]

NARRATIVE: CASE EVENT DATE: 20121214
